FAERS Safety Report 7914711-4 (Version None)
Quarter: 2011Q4

REPORT INFORMATION
  Report Type: 
  Country: None (occurrence: None)
  Receive Date: 20111115
  Receipt Date: 20111109
  Transmission Date: 20120403
  Serious: Yes (Other)
  Sender: FDA-Public Use
  Company Number: PHHY2011IT93012

PATIENT
  Sex: Female

DRUGS (5)
  1. ARICEPT [Suspect]
     Dosage: 1 DF, DAILY
     Route: 048
     Dates: start: 20100719
  2. PANTOPRAZOLE [Concomitant]
  3. PAROXETINE HCL [Suspect]
     Dosage: 1 DF, DAILY
     Route: 048
     Dates: start: 20100719
  4. VALSARTAN [Suspect]
     Dosage: 80 MG, DAILY
     Route: 048
     Dates: start: 20100719
  5. NITROGLYCERIN [Suspect]
     Dosage: 5 MG, DAILY
     Route: 062
     Dates: start: 20110718, end: 20110718

REACTIONS (1)
  - PRESYNCOPE [None]
